FAERS Safety Report 21094688 (Version 1)
Quarter: 2022Q3

REPORT INFORMATION
  Report Type: Spontaneous
  Country: US (occurrence: None)
  Receive Date: 20220717
  Receipt Date: 20220717
  Transmission Date: 20221027
  Serious: Yes (Hospitalization)
  Sender: FDA-Public Use
  Company Number: None

PATIENT
  Age: 60 Year
  Sex: Female

DRUGS (1)
  1. OTEZLA [Suspect]
     Active Substance: APREMILAST
     Dosage: 30MG BID ORAL?
     Route: 048
     Dates: start: 201803

REACTIONS (3)
  - Ureteric compression [None]
  - Renal injury [None]
  - Post procedural complication [None]

NARRATIVE: CASE EVENT DATE: 20220717
